FAERS Safety Report 6942189-6 (Version None)
Quarter: 2010Q3

REPORT INFORMATION
  Report Type: 
  Country: None (occurrence: None)
  Receive Date: 20100820
  Receipt Date: 20100804
  Transmission Date: 20110219
  Serious: Yes (Disabling, Other)
  Sender: FDA-Public Use
  Company Number: ACO_01671_2010

PATIENT
  Sex: Female
  Weight: 81.6475 kg

DRUGS (6)
  1. AMPYRA [Suspect]
     Indication: GAIT DISTURBANCE
     Dosage: (10 MG BID ORAL)
     Route: 048
     Dates: start: 20100730
  2. REBIF [Concomitant]
  3. BACLOFEN [Concomitant]
  4. NAPROXEN [Concomitant]
  5. VITAMIN TAB [Concomitant]
  6. MINERAL TAB [Concomitant]

REACTIONS (6)
  - ABASIA [None]
  - CONFUSIONAL STATE [None]
  - DIZZINESS [None]
  - HEADACHE [None]
  - MUSCULAR WEAKNESS [None]
  - MUSCULOSKELETAL STIFFNESS [None]
